FAERS Safety Report 24624303 (Version 1)
Quarter: 2024Q4

REPORT INFORMATION
  Report Type: Spontaneous
  Country: US (occurrence: US)
  Receive Date: 20241115
  Receipt Date: 20241115
  Transmission Date: 20250115
  Serious: No
  Sender: Kenvue
  Company Number: US-KENVUE-20241029625

PATIENT

DRUGS (4)
  1. ZYRTEC [Suspect]
     Active Substance: CETIRIZINE HYDROCHLORIDE
     Indication: Mast cell activation syndrome
     Dosage: 10 MILLIGRAM, TWICE A DAY
     Route: 065
  2. PEPCID [Suspect]
     Active Substance: FAMOTIDINE
     Indication: Mast cell activation syndrome
     Dosage: 40 MILLIGRAM
     Route: 065
  3. XOLAIR [Concomitant]
     Active Substance: OMALIZUMAB
     Indication: Mast cell activation syndrome
     Route: 065
  4. KETOTIFEN [Concomitant]
     Active Substance: KETOTIFEN
     Indication: Mast cell activation syndrome
     Dosage: 4 MILLIGRAM, ONCE A DAY

REACTIONS (3)
  - Fat tissue increased [Unknown]
  - Off label use [Unknown]
  - Therapeutic response unexpected [Unknown]
